FAERS Safety Report 14734419 (Version 2)
Quarter: 2018Q2

REPORT INFORMATION
  Report Type: Report from Study
  Country: JP (occurrence: JP)
  Receive Date: 20180409
  Receipt Date: 20180426
  Transmission Date: 20180711
  Serious: Yes (Other)
  Sender: FDA-Public Use
  Company Number: JP-TEVA-2018-JP-877256

PATIENT
  Age: 7 Decade

DRUGS (1)
  1. FILGRASTIM BIOSIMILAR 1 [Suspect]
     Active Substance: FILGRASTIM
     Indication: HAEMATOPOIETIC STEM CELL MOBILISATION
     Dosage: 600 MILLIGRAM DAILY;
     Route: 065

REACTIONS (1)
  - Interstitial lung disease [Recovering/Resolving]
